FAERS Safety Report 16994304 (Version 1)
Quarter: 2019Q4

REPORT INFORMATION
  Report Type: Report from Study
  Country: None (occurrence: US)
  Receive Date: 20191105
  Receipt Date: 20191105
  Transmission Date: 20200122
  Serious: Yes (Hospitalization, Other)
  Sender: FDA-Public Use
  Company Number: US-ABBVIE-19K-163-2754310-00

PATIENT
  Age: 61 Year
  Sex: Male

DRUGS (2)
  1. HUMIRA [Suspect]
     Active Substance: ADALIMUMAB
     Indication: CROHN^S DISEASE
     Route: 058
     Dates: start: 2019
  2. HUMIRA [Suspect]
     Active Substance: ADALIMUMAB
     Indication: RHEUMATOID ARTHRITIS
     Route: 058
     Dates: start: 2017

REACTIONS (7)
  - Therapeutic response shortened [Unknown]
  - Surgery [Unknown]
  - Compression fracture [Recovering/Resolving]
  - Gastrointestinal inflammation [Not Recovered/Not Resolved]
  - Spinal compression fracture [Recovered/Resolved]
  - Therapeutic product effect decreased [Unknown]
  - Kyphosis [Recovering/Resolving]

NARRATIVE: CASE EVENT DATE: 2018
